FAERS Safety Report 10211582 (Version 1)
Quarter: 2014Q2

REPORT INFORMATION
  Report Type: Spontaneous
  Country: NL (occurrence: None)
  Receive Date: 20140528
  Receipt Date: 20140528
  Transmission Date: 20141212
  Serious: Yes (Other)
  Sender: FDA-Public Use
  Company Number: 2014P1004270

PATIENT
  Age: 60 Year
  Sex: Female

DRUGS (2)
  1. MITOMYCIN [Suspect]
     Indication: ANAL CANCER
  2. FLUOROURACIL [Concomitant]

REACTIONS (15)
  - Dyspnoea [None]
  - Oedema peripheral [None]
  - Oxygen saturation decreased [None]
  - Jugular vein distension [None]
  - Clubbing [None]
  - Dilatation ventricular [None]
  - Right ventricular dysfunction [None]
  - Pleural effusion [None]
  - Venoocclusive disease [None]
  - Fluid overload [None]
  - Tricuspid valve incompetence [None]
  - Pulmonary arterial hypertension [None]
  - Cardiac output decreased [None]
  - Brain natriuretic peptide increased [None]
  - Pulmonary arterial pressure increased [None]
